FAERS Safety Report 4363985-8 (Version None)
Quarter: 2004Q2

REPORT INFORMATION
  Report Type: 
  Country: None (occurrence: None)
  Receive Date: 20040521
  Receipt Date: 20040521
  Transmission Date: 20050107
  Serious: Yes (Other)
  Sender: FDA-Public Use
  Company Number: None

PATIENT
  Age: 41 Year
  Sex: Male
  Weight: 99.7913 kg

DRUGS (2)
  1. ZICAM HOMEOPATHIC MATRIXX INITIATIVES, INC [Suspect]
     Indication: NASOPHARYNGITIS
     Dosage: 1 PUMP EVERY 4 HO NASAL
     Route: 045
     Dates: start: 20040115, end: 20040130
  2. ZICAM HOMEOPATHIC MATRIXX INITIATIVES, INC [Suspect]
     Indication: PROPHYLAXIS
     Dosage: 1 PUMP EVERY 4 HO NASAL
     Route: 045
     Dates: start: 20040115, end: 20040130

REACTIONS (3)
  - AGEUSIA [None]
  - ANOSMIA [None]
  - BURNING SENSATION [None]
